FAERS Safety Report 20193492 (Version 1)
Quarter: 2021Q4

REPORT INFORMATION
  Report Type: Spontaneous
  Country: US (occurrence: None)
  Receive Date: 20211215
  Receipt Date: 20211215
  Transmission Date: 20220303
  Serious: Yes (Hospitalization)
  Sender: FDA-Public Use
  Company Number: None

PATIENT
  Age: 47 Year
  Sex: Female

DRUGS (1)
  1. HUMIRA [Suspect]
     Active Substance: ADALIMUMAB
     Route: 058
     Dates: start: 20210918

REACTIONS (5)
  - Colitis ulcerative [None]
  - Condition aggravated [None]
  - Bacterial infection [None]
  - Product dose omission issue [None]
  - Device malfunction [None]

NARRATIVE: CASE EVENT DATE: 20211209
